FAERS Safety Report 7606550-9 (Version None)
Quarter: 2011Q3

REPORT INFORMATION
  Report Type: 
  Country: None (occurrence: None)
  Receive Date: 20110713
  Receipt Date: 20110701
  Transmission Date: 20111222
  Serious: Yes (Other)
  Sender: FDA-Public Use
  Company Number: PHFR2011GB04030

PATIENT
  Age: 57 Year
  Sex: Male

DRUGS (4)
  1. AMLODIPINE [Concomitant]
     Indication: RENAL TRANSPLANT
     Dosage: 10 MG, QD
     Route: 048
  2. PROGRAF [Concomitant]
     Dosage: 3 MG, BID
     Route: 048
  3. MYCOPHENOLIC ACID [Suspect]
     Indication: RENAL TRANSPLANT
     Dosage: 500 MG, BID
     Route: 048
     Dates: start: 20110525, end: 20110611
  4. PREDNISOLONE [Concomitant]
     Dosage: 5 MG, QD
     Route: 048

REACTIONS (4)
  - COMPLICATIONS OF TRANSPLANTED KIDNEY [None]
  - RENAL FAILURE ACUTE [None]
  - DIARRHOEA [None]
  - KIDNEY TRANSPLANT REJECTION [None]
